FAERS Safety Report 14526073 (Version 1)
Quarter: 2018Q1

REPORT INFORMATION
  Report Type: Spontaneous
  Country: US (occurrence: US)
  Receive Date: 20180213
  Receipt Date: 20180213
  Transmission Date: 20180509
  Serious: Yes (Hospitalization, Other)
  Sender: FDA-Public Use
  Company Number: US-EPIC PHARMA LLC-2018EPC00048

PATIENT
  Age: 68 Year
  Sex: Male

DRUGS (5)
  1. AMLODIPINE [Suspect]
     Active Substance: AMLODIPINE BESYLATE
     Route: 065
  2. GABAPENTIN. [Suspect]
     Active Substance: GABAPENTIN
     Route: 065
  3. WARFARIN [Concomitant]
     Active Substance: WARFARIN
     Route: 065
  4. INSULIN [Concomitant]
     Active Substance: INSULIN NOS
     Route: 065
  5. ANTICOAGULATION AGENT [Concomitant]
     Route: 065

REACTIONS (10)
  - Acute kidney injury [Unknown]
  - Hyperkalaemia [Unknown]
  - Respiratory failure [Recovering/Resolving]
  - Pericardial effusion [Recovered/Resolved]
  - Lactic acidosis [Unknown]
  - Toxicity to various agents [Recovering/Resolving]
  - Hyperglycaemia [Unknown]
  - Cardiac tamponade [Recovered/Resolved]
  - Cardiogenic shock [Recovering/Resolving]
  - Hepatic cirrhosis [Unknown]
